FAERS Safety Report 9413429 (Version 1)
Quarter: 2013Q3

REPORT INFORMATION
  Report Type: Report from Study
  Country: US (occurrence: US)
  Receive Date: 20130722
  Receipt Date: 20130722
  Transmission Date: 20140515
  Serious: Yes (Other)
  Sender: FDA-Public Use
  Company Number: US-ROCHE-1250313

PATIENT
  Sex: Female
  Weight: 55.39 kg

DRUGS (6)
  1. XOLAIR [Suspect]
     Indication: ASTHMA
     Dosage: 150MG MIXED WITH 1.4ML OF STERILE WATER
     Route: 058
  2. SPIRIVA [Concomitant]
     Dosage: --2010
     Route: 055
     Dates: end: 2010
  3. ADVAIR [Concomitant]
     Indication: ASTHMA
     Dosage: --2010
     Route: 055
     Dates: end: 2010
  4. METOCLOPRAMIDE [Concomitant]
     Route: 048
     Dates: start: 201304
  5. MONTELUKAST [Concomitant]
     Indication: ASTHMA
     Route: 048
     Dates: start: 201302
  6. PRAVASTATIN [Concomitant]
     Route: 048

REACTIONS (4)
  - Abdominal hernia repair [Unknown]
  - Vomiting [Unknown]
  - Weight decreased [Unknown]
  - Ulcer [Unknown]
